FAERS Safety Report 18280192 (Version 1)
Quarter: 2020Q3

REPORT INFORMATION
  Report Type: Spontaneous
  Country: US (occurrence: US)
  Receive Date: 20200917
  Receipt Date: 20200917
  Transmission Date: 20201103
  Serious: No
  Sender: FDA-Public Use
  Company Number: US-PFIZER INC-2020355997

PATIENT
  Age: 62 Year
  Sex: Female

DRUGS (2)
  1. SIMVASTATIN. [Interacting]
     Active Substance: SIMVASTATIN
     Dosage: UNK
  2. IBRANCE [Suspect]
     Active Substance: PALBOCICLIB
     Indication: BREAST CANCER FEMALE
     Dosage: 125 MG, CYCLIC (DAILY FOR 21 DAYS ON, 7 DAYS OFF ON A 28 DAY CYCLE)
     Dates: start: 20200909

REACTIONS (3)
  - Rash [Unknown]
  - Rash macular [Unknown]
  - Drug interaction [Unknown]
